FAERS Safety Report 7241800-2 (Version None)
Quarter: 2011Q1

REPORT INFORMATION
  Report Type: 
  Country: None (occurrence: None)
  Receive Date: 20110124
  Receipt Date: 20110114
  Transmission Date: 20110831
  Serious: Yes (Disabling)
  Sender: FDA-Public Use
  Company Number: GB-ASTRAZENECA-2011SE02506

PATIENT
  Age: 90 Year
  Sex: Male

DRUGS (1)
  1. ZOLADEX [Suspect]
     Indication: PROSTATE CANCER
     Route: 058
     Dates: start: 20100212, end: 20101028

REACTIONS (4)
  - DYSPNOEA [None]
  - CHILLS [None]
  - FEELING COLD [None]
  - HALLUCINATION, AUDITORY [None]
